FAERS Safety Report 12823813 (Version 1)
Quarter: 2016Q4

REPORT INFORMATION
  Report Type: Spontaneous
  Country: US (occurrence: US)
  Receive Date: 20161007
  Receipt Date: 20161007
  Transmission Date: 20170207
  Serious: No
  Sender: FDA-Public Use
  Company Number: US-GLAXOSMITHKLINE-US2016144797

PATIENT
  Age: 82 Year
  Sex: Male

DRUGS (1)
  1. PREVACID 24 HR [Suspect]
     Active Substance: LANSOPRAZOLE
     Indication: BARRETT^S OESOPHAGUS
     Dosage: 2 DF, QD
     Route: 048

REACTIONS (3)
  - Flushing [Not Recovered/Not Resolved]
  - Overdose [Unknown]
  - Intentional product misuse [Unknown]
